FAERS Safety Report 9396023 (Version 1)
Quarter: 2013Q3

REPORT INFORMATION
  Report Type: Spontaneous
  Country: US (occurrence: US)
  Receive Date: 20130711
  Receipt Date: 20130711
  Transmission Date: 20140515
  Serious: No
  Sender: FDA-Public Use
  Company Number: US-PFIZER INC-2013202469

PATIENT
  Age: 71 Year
  Sex: Male
  Weight: 83.45 kg

DRUGS (8)
  1. VIAGRA [Suspect]
     Indication: ERECTILE DYSFUNCTION
     Dosage: UNK, AS NEEDED
     Route: 048
  2. VIAGRA [Suspect]
     Dosage: 50 MG, AS NEEDED
     Route: 048
  3. VIAGRA [Suspect]
     Dosage: 100 MG, UNK
     Route: 048
  4. VIAGRA [Suspect]
     Dosage: 300 MG, AS NEEDED
     Route: 048
  5. OMEPRAZOLE [Concomitant]
     Indication: GASTROOESOPHAGEAL REFLUX DISEASE
     Dosage: 20 MG, 2X/DAY
  6. TAMSULOSIN [Concomitant]
     Indication: PROSTATOMEGALY
     Dosage: 0.4 MG, 2X/DAY
  7. TRIAMTERENE/HYDROCHLOROTHIAZIDE [Concomitant]
     Indication: HYPERTENSION
     Dosage: TRIAMTERENE37.5 MG / HYDROCHLOROTHIAZIDE  25 MG, 1X/DAY
     Route: 048
  8. IRBESARTAN [Concomitant]
     Indication: HYPERTENSION
     Dosage: 150 MG, 2X/DAY

REACTIONS (3)
  - Flushing [Unknown]
  - Drug ineffective [Unknown]
  - Intentional drug misuse [Unknown]
